APPROVED DRUG PRODUCT: FLOMAX
Active Ingredient: TAMSULOSIN HYDROCHLORIDE
Strength: 0.4MG
Dosage Form/Route: CAPSULE;ORAL
Application: N020579 | Product #001
Applicant: SANOFI AVENTIS US LLC
Approved: Apr 15, 1997 | RLD: Yes | RS: No | Type: DISCN